FAERS Safety Report 8589949-6 (Version None)
Quarter: 2012Q3

REPORT INFORMATION
  Report Type: 
  Country: None (occurrence: None)
  Receive Date: 20120813
  Receipt Date: 19900601
  Transmission Date: 20120928
  Serious: Yes (Hospitalization, Other)
  Sender: FDA-Public Use
  Company Number: US-ROCHE-1099277

PATIENT
  Age: 47 Year
  Sex: Female

DRUGS (6)
  1. DYAZIDE [Concomitant]
  2. RIOPAN [Concomitant]
  3. ACTIVASE [Suspect]
     Indication: ACUTE MYOCARDIAL INFARCTION
  4. GLUCOTROL [Concomitant]
  5. THEO-DUR [Concomitant]
  6. ZANTAC [Concomitant]

REACTIONS (2)
  - CHEST PAIN [None]
  - VOMITING [None]
